FAERS Safety Report 16454060 (Version 2)
Quarter: 2019Q3

REPORT INFORMATION
  Report Type: Spontaneous
  Country: US (occurrence: US)
  Receive Date: 20190620
  Receipt Date: 20190701
  Transmission Date: 20191004
  Serious: Yes (Life-Threatening, Hospitalization, Other)
  Sender: FDA-Public Use
  Company Number: US-AUROBINDO-AUR-APL-2019-034399

PATIENT

DRUGS (2)
  1. MICONAZOLE. [Concomitant]
     Active Substance: MICONAZOLE
     Indication: PRODUCT USED FOR UNKNOWN INDICATION
     Dosage: UNK
     Route: 061
  2. TRIMETHOPRIM+SULFAMETHOXAZOLE [Suspect]
     Active Substance: SULFAMETHOXAZOLE\TRIMETHOPRIM
     Indication: ACNE
     Dosage: UNK
     Route: 065

REACTIONS (16)
  - Pleural effusion [Unknown]
  - Tachypnoea [Unknown]
  - Pneumomediastinum [Unknown]
  - Headache [Unknown]
  - Cough [Unknown]
  - Acute respiratory failure [Recovered/Resolved]
  - Multiple organ dysfunction syndrome [Recovered/Resolved]
  - Pyrexia [Unknown]
  - Hypoxia [Unknown]
  - Renal failure [Recovered/Resolved]
  - Fatigue [Unknown]
  - Acute respiratory distress syndrome [Recovering/Resolving]
  - Pharyngitis [Unknown]
  - Dizziness [Unknown]
  - Pneumothorax [Unknown]
  - Chest pain [Unknown]
